FAERS Safety Report 6979354-8 (Version None)
Quarter: 2010Q3

REPORT INFORMATION
  Report Type: 
  Country: None (occurrence: None)
  Receive Date: 20100910
  Receipt Date: 20100910
  Transmission Date: 20110219
  Serious: Yes (Other)
  Sender: FDA-Public Use
  Company Number: None

PATIENT
  Sex: Female
  Weight: 68.0396 kg

DRUGS (2)
  1. LEVAQUIN [Suspect]
     Indication: INFECTION
     Dosage: 500 MG/7 PILLS 1/DAY
     Dates: start: 20091020
  2. LEVAQUIN [Suspect]
     Indication: LUNG NEOPLASM MALIGNANT
     Dosage: 500 MG/7 PILLS 1/DAY
     Dates: start: 20091020

REACTIONS (1)
  - TENDON DISORDER [None]
